FAERS Safety Report 9307793 (Version 3)
Quarter: 2014Q3

REPORT INFORMATION
  Report Type: Spontaneous
  Country: US (occurrence: US)
  Receive Date: 20130524
  Receipt Date: 20140926
  Transmission Date: 20150326
  Serious: Yes (Congenital Anomaly, Other)
  Sender: FDA-Public Use
  Company Number: US-PFIZER INC-2013157974

PATIENT
  Sex: Male
  Weight: 2.8 kg

DRUGS (13)
  1. LORATADINE. [Concomitant]
     Active Substance: LORATADINE
     Dosage: 10 MG, 1X/DAY
     Route: 064
     Dates: start: 20060424, end: 20061002
  2. EFFEXOR XR [Concomitant]
     Active Substance: VENLAFAXINE HYDROCHLORIDE
     Dosage: 150 MG, 1X/DAY
     Route: 064
     Dates: start: 20040727, end: 20071013
  3. ZOFRAN [Concomitant]
     Active Substance: ONDANSETRON HYDROCHLORIDE
     Dosage: 4 MG, 1X/DAY
     Route: 064
     Dates: start: 20061108
  4. PROMETHAZINE [Concomitant]
     Active Substance: PROMETHAZINE\PROMETHAZINE HYDROCHLORIDE
     Dosage: 25 MG, EVERY 6 HOURS AS NEEDED
     Route: 064
     Dates: start: 20061108, end: 20061207
  5. EFFEXOR [Suspect]
     Active Substance: VENLAFAXINE HYDROCHLORIDE
     Indication: DEPRESSION
     Dosage: UNK
     Route: 064
     Dates: start: 20060822
  6. PRENATE ELITE [Concomitant]
     Active Substance: .ALPHA.-TOCOPHEROL\ASCORBIC ACID\BIOTIN\CALCIUM CARBONATE\CHOLECALCIFEROL\COPPER\CYANOCOBALAMIN\FERROUS FUMARATE\FOLIC ACID\IODINE\MAGNESIUM\NIACINAMIDE\PANTOTHENIC ACID\PYRIDOXINE\RIBOFLAVIN\THIAMINE\VITAMIN A\ZINC
     Dosage: UNK, ONCE DAILY
     Route: 064
     Dates: start: 20060919, end: 20070406
  7. PHENERGAN [Concomitant]
     Active Substance: PROMETHAZINE HYDROCHLORIDE
     Dosage: 25 MG, 1X/DAY
     Route: 064
     Dates: start: 20061108
  8. AZITHROMYCIN [Concomitant]
     Active Substance: AZITHROMYCIN ANHYDROUS
     Dosage: 250 MG, UNK
     Route: 064
     Dates: start: 20070307
  9. VALTREX [Concomitant]
     Active Substance: VALACYCLOVIR HYDROCHLORIDE
     Dosage: 500 MG, 2X/DAY
     Route: 064
     Dates: start: 20060406, end: 20070625
  10. EFFEXOR XR [Concomitant]
     Active Substance: VENLAFAXINE HYDROCHLORIDE
     Dosage: 75 MG, 1X/DAY
     Route: 064
     Dates: start: 20050613, end: 20070911
  11. LORAZEPAM. [Concomitant]
     Active Substance: LORAZEPAM
     Dosage: 1 MG, UNK
     Route: 064
     Dates: start: 20060814
  12. HYDROXYZINE [Concomitant]
     Active Substance: HYDROXYZINE\HYDROXYZINE HYDROCHLORIDE
     Dosage: 25 MG, EVERY 6 HOURS AS NEEDED
     Route: 064
     Dates: start: 20070402
  13. VENLAFAXINE HCL [Suspect]
     Active Substance: VENLAFAXINE HYDROCHLORIDE
     Dosage: UNK
     Route: 064

REACTIONS (4)
  - Talipes [Unknown]
  - Premature baby [Unknown]
  - Maternal exposure during pregnancy [Unknown]
  - Congenital anomaly [Unknown]

NARRATIVE: CASE EVENT DATE: 20070423
